FAERS Safety Report 6051896-1 (Version None)
Quarter: 2009Q1

REPORT INFORMATION
  Report Type: 
  Country: None (occurrence: None)
  Receive Date: 20090121
  Receipt Date: 20090121
  Transmission Date: 20090719
  Serious: Yes (Other)
  Sender: FDA-Public Use
  Company Number: None

PATIENT
  Sex: Female
  Weight: 72.5755 kg

DRUGS (1)
  1. AMOXICILLIN + CLAVULANATE POTASSIUM [Suspect]
     Indication: SINUSITIS
     Dosage: 1 TABLET BY MOUTH EVERY 12 HOURS #034
     Route: 048
     Dates: start: 20081230, end: 20090104

REACTIONS (3)
  - BOWEL MOVEMENT IRREGULARITY [None]
  - DIARRHOEA [None]
  - GASTROINTESTINAL HYPERMOTILITY [None]
